FAERS Safety Report 15820302 (Version 1)
Quarter: 2019Q1

REPORT INFORMATION
  Report Type: Spontaneous
  Country: US (occurrence: US)
  Receive Date: 20190114
  Receipt Date: 20190114
  Transmission Date: 20190417
  Serious: Yes (Death)
  Sender: FDA-Public Use
  Company Number: US-MICRO LABS LIMITED-ML2019-00034

PATIENT
  Age: 54 Year
  Sex: Male

DRUGS (8)
  1. CYCLOPROPYLFENTANYL [Suspect]
     Active Substance: CYCLOPROPYLFENTANYL
  2. COCAINE [Suspect]
     Active Substance: COCAINE
  3. LAMOTRIGINE. [Suspect]
     Active Substance: LAMOTRIGINE
  4. DIPHENHYDRAMINE HYDROCHLORIDE. [Suspect]
     Active Substance: DIPHENHYDRAMINE HYDROCHLORIDE
  5. HYDROCODONE [Suspect]
     Active Substance: HYDROCODONE
  6. FLUOXETINE [Suspect]
     Active Substance: FLUOXETINE HYDROCHLORIDE
  7. ARIPIPRAZOLE. [Suspect]
     Active Substance: ARIPIPRAZOLE
  8. BENZOYLECGONINE [Suspect]
     Active Substance: BENZOYLECGONINE

REACTIONS (1)
  - Toxicity to various agents [Fatal]
